FAERS Safety Report 8337154-0 (Version None)
Quarter: 2012Q2

REPORT INFORMATION
  Report Type: 
  Country: None (occurrence: None)
  Receive Date: 20120501
  Receipt Date: 20120416
  Transmission Date: 20120825
  Serious: Yes (Hospitalization)
  Sender: FDA-Public Use
  Company Number: FK201201113

PATIENT
  Age: 71 Year
  Sex: Male

DRUGS (1)
  1. CLONIDINE HYDROCHLORIDE [Suspect]
     Indication: BACK PAIN
     Dosage: 275 UG (600 UG/ML) DAILY, INTRATHECAL
     Route: 037

REACTIONS (5)
  - LOSS OF CONSCIOUSNESS [None]
  - DEVICE LEAKAGE [None]
  - SPEECH DISORDER [None]
  - OVERDOSE [None]
  - HYPERTENSION [None]
